FAERS Safety Report 8961636 (Version 3)
Quarter: 2013Q1

REPORT INFORMATION
  Report Type: Spontaneous
  Country: US (occurrence: US)
  Receive Date: 20121213
  Receipt Date: 20130304
  Transmission Date: 20140127
  Serious: Yes (Hospitalization)
  Sender: FDA-Public Use
  Company Number: US-BAYER-2012-129295

PATIENT
  Age: 30 Year
  Sex: Female
  Weight: 79.37 kg

DRUGS (24)
  1. YASMIN [Suspect]
     Indication: DYSMENORRHOEA
     Dosage: UNK
     Dates: start: 20080530, end: 20090411
  2. YASMIN [Suspect]
     Indication: DYSMENORRHOEA
     Dosage: UNK
     Dates: start: 2007, end: 2009
  3. OCELLA [Suspect]
     Dosage: UNK
     Dates: start: 2007, end: 2009
  4. SEROQUEL [Concomitant]
     Dosage: 100 MG 2 TS (INTERPRETED AS TEASPOON) HS (INTERPRETED AS AT NIGHT) [PER PR] QD (INTERPRETED AS EVERY
     Route: 048
     Dates: start: 20090610
  5. PROCHLORPERAZINE [Concomitant]
     Indication: NAUSEA
     Dosage: 10 MG 1 T Q 6-8 H PRN (INTERPRETED AS WHEN NEEDED)
     Route: 048
  6. CITALOPRAM [Concomitant]
     Dosage: 10 MG 1 T (INTERPRETED AS TABLESPOON)
     Route: 048
  7. LYRICA [Concomitant]
     Indication: MYALGIA
     Dosage: UNK
     Route: 048
  8. LYRICA [Concomitant]
     Indication: MYOSITIS
  9. CARISOPRODOL [Concomitant]
     Indication: MUSCLE SPASMS
     Dosage: 350 MG 1 QID (INTERPRETED AS FOUR TIMES PER DAY)
     Route: 048
  10. FLONASE [Concomitant]
     Indication: NASAL DISORDER
     Dosage: 1 SPRAY TWICE DAILY
     Route: 045
  11. AMBIEN [Concomitant]
     Dosage: 10 MG, PRN
  12. CLEOCIN [Concomitant]
     Indication: ACNE
     Dosage: GEL APPLIED ON TOPICAL AREA BID
     Route: 061
  13. ADVIL [Concomitant]
     Indication: BACK PAIN
     Dosage: UNK
  14. ADVIL [Concomitant]
     Indication: PAIN IN EXTREMITY
  15. TYLENOL [Concomitant]
     Indication: BACK PAIN
     Dosage: UNK
  16. TYLENOL [Concomitant]
     Indication: PAIN IN EXTREMITY
  17. ASPERCREME [Concomitant]
     Indication: BACK PAIN
     Dosage: UNK
  18. ASPERCREME [Concomitant]
     Indication: PAIN IN EXTREMITY
  19. PERCOCET [Concomitant]
     Dosage: UNK
  20. ALEVE [Concomitant]
     Indication: BACK PAIN
     Dosage: UNK
  21. ALEVE [Concomitant]
     Indication: PAIN IN EXTREMITY
  22. TORADOL [Concomitant]
     Indication: BACK PAIN
     Dosage: 60 MG, UNK
     Route: 051
  23. MINOCYCLINE [Concomitant]
     Dosage: 1 MG/KG; 100 MG
  24. ZOLPIDEM [Concomitant]
     Dosage: 10 MG, UNK
     Route: 048

REACTIONS (8)
  - Deep vein thrombosis [None]
  - Injury [None]
  - Pain [None]
  - General physical health deterioration [None]
  - Emotional distress [None]
  - Pain [None]
  - Anxiety [None]
  - Anhedonia [None]
